FAERS Safety Report 10763972 (Version 1)
Quarter: 2015Q1

REPORT INFORMATION
  Report Type: Report from Study
  Country: US (occurrence: US)
  Receive Date: 20150204
  Receipt Date: 20150204
  Transmission Date: 20150721
  Serious: Yes (Death, Hospitalization)
  Sender: FDA-Public Use
  Company Number: US-JNJFOC-20150114459

PATIENT
  Age: 66 Year
  Sex: Female
  Weight: 41.6 kg

DRUGS (23)
  1. HYDROMORPHONE [Concomitant]
     Active Substance: HYDROMORPHONE
  2. ESZOPICLONE. [Concomitant]
     Active Substance: ESZOPICLONE
  3. ALPRAZOLAM. [Concomitant]
     Active Substance: ALPRAZOLAM
  4. IFOSFAMIDE. [Suspect]
     Active Substance: IFOSFAMIDE
     Indication: DIFFUSE LARGE B-CELL LYMPHOMA
     Dosage: 5 G/M2 IVCI, OVER 24 HOURS ON DAY 3
     Route: 042
     Dates: start: 20141020
  5. ETOPOSIDE. [Suspect]
     Active Substance: ETOPOSIDE
     Indication: DIFFUSE LARGE B-CELL LYMPHOMA
     Dosage: ON DAYS 2-4
     Route: 042
     Dates: start: 20141019
  6. TRAMADOL HYDROCHLORIDE. [Concomitant]
     Active Substance: TRAMADOL HYDROCHLORIDE
  7. ONDANSETRON [Concomitant]
     Active Substance: ONDANSETRON
  8. POTASSIUM CHLORIDE. [Concomitant]
     Active Substance: POTASSIUM CHLORIDE
  9. POTASSIUM CHLORIDE/SODIUM CHLORIDE [Concomitant]
  10. DOCUSATE SODIUM. [Concomitant]
     Active Substance: DOCUSATE SODIUM
  11. MESALAMINE. [Concomitant]
     Active Substance: MESALAMINE
  12. OMEPRAZOLE. [Concomitant]
     Active Substance: OMEPRAZOLE
  13. CALCITONIN-SALMON [Concomitant]
     Active Substance: CALCITONIN SALMON
  14. IBRUTINIB [Suspect]
     Active Substance: IBRUTINIB
     Route: 048
  15. CARBOPLATIN. [Suspect]
     Active Substance: CARBOPLATIN
     Indication: DIFFUSE LARGE B-CELL LYMPHOMA
     Dosage: AUC 5, ON DAY 3
     Route: 042
     Dates: start: 20141020
  16. RITUXIMAB [Suspect]
     Active Substance: RITUXIMAB
     Indication: DIFFUSE LARGE B-CELL LYMPHOMA
     Dosage: ON DAY 1
     Route: 042
     Dates: start: 20141018
  17. SENNA [Concomitant]
     Active Substance: SENNA LEAF\SENNOSIDES\SENNOSIDES A AND B
  18. IBRUTINIB [Suspect]
     Active Substance: IBRUTINIB
     Indication: DIFFUSE LARGE B-CELL LYMPHOMA
     Route: 048
     Dates: start: 20141018
  19. PIPERACILLIN AND TAZOBACTAM [Concomitant]
     Active Substance: PIPERACILLIN SODIUM\TAZOBACTAM SODIUM
  20. DEXAMETHASONE. [Concomitant]
     Active Substance: DEXAMETHASONE
  21. ACYCLOVIR. [Concomitant]
     Active Substance: ACYCLOVIR
  22. ACETAMINOPHEN. [Concomitant]
     Active Substance: ACETAMINOPHEN
  23. OXYCODONE [Concomitant]
     Active Substance: OXYCODONE

REACTIONS (4)
  - Bone pain [Not Recovered/Not Resolved]
  - Death [Fatal]
  - Pyrexia [Recovered/Resolved]
  - Hypokalaemia [Recovered/Resolved]

NARRATIVE: CASE EVENT DATE: 20141225
